FAERS Safety Report 16732890 (Version 1)
Quarter: 2019Q3

REPORT INFORMATION
  Report Type: Spontaneous
  Country: US (occurrence: US)
  Receive Date: 20190823
  Receipt Date: 20190823
  Transmission Date: 20191005
  Serious: No
  Sender: FDA-Public Use
  Company Number: US-TEVA-2019-US-1095190

PATIENT
  Sex: Female

DRUGS (4)
  1. KLONOPIN [Concomitant]
     Active Substance: CLONAZEPAM
  2. VITAMIN D [Suspect]
     Active Substance: VITAMIN D NOS
     Route: 065
  3. COPAXONE [Suspect]
     Active Substance: GLATIRAMER ACETATE
     Indication: MULTIPLE SCLEROSIS
     Dosage: FOR ABOUT 13.5 YEARS, FORM STRENGTH: UNKNOWN
     Route: 065
  4. VITAMIN D [Suspect]
     Active Substance: VITAMIN D NOS
     Indication: PRODUCT USED FOR UNKNOWN INDICATION
     Route: 065

REACTIONS (4)
  - Blood calcium increased [Recovered/Resolved]
  - Vitamin D increased [Not Recovered/Not Resolved]
  - Upper-airway cough syndrome [Unknown]
  - Renal cyst [Unknown]
